FAERS Safety Report 14756071 (Version 1)
Quarter: 2018Q2

REPORT INFORMATION
  Report Type: Spontaneous
  Country: ES (occurrence: ES)
  Receive Date: 20180413
  Receipt Date: 20180413
  Transmission Date: 20180711
  Serious: Yes (Death)
  Sender: FDA-Public Use
  Company Number: ES-ALKEM LABORATORIES LIMITED-ES-ALKEM-2017-01381

PATIENT
  Age: 89 Year
  Sex: Female

DRUGS (4)
  1. DIFLUCAN [Interacting]
     Active Substance: FLUCONAZOLE
     Indication: ORAL CANDIDIASIS
     Dosage: 2,5 CC/DIA
     Route: 048
     Dates: start: 201704
  2. OMEPRAZOLE. [Interacting]
     Active Substance: OMEPRAZOLE
     Indication: PROPHYLAXIS AGAINST GASTROINTESTINAL ULCER
     Dosage: 20 MG, OD
     Route: 048
     Dates: start: 2017
  3. QUETIAPINE FUMARATE. [Suspect]
     Active Substance: QUETIAPINE FUMARATE
     Indication: MIXED DEMENTIA
     Dosage: 100 MG, OD
     Route: 048
     Dates: start: 201704
  4. TRANGOREX 200 MG COMPRIMIDOS [Interacting]
     Active Substance: AMIODARONE HYDROCHLORIDE
     Indication: ARRHYTHMIA
     Dosage: 100 MG EXCEPT THURSDAYS AND SUNDAYS
     Route: 048
     Dates: start: 2017

REACTIONS (1)
  - Cardiac failure [Fatal]

NARRATIVE: CASE EVENT DATE: 201705
